FAERS Safety Report 14583269 (Version 1)
Quarter: 2018Q1

REPORT INFORMATION
  Report Type: Spontaneous
  Country: US (occurrence: US)
  Receive Date: 20180228
  Receipt Date: 20180228
  Transmission Date: 20180509
  Serious: No
  Sender: FDA-Public Use
  Company Number: US-MYLANLABS-2018M1011263

PATIENT
  Sex: Male

DRUGS (1)
  1. FENTANYL TRANSDERMAL SYSTEM [Suspect]
     Active Substance: FENTANYL
     Indication: PAIN
     Dosage: UNK
     Route: 058

REACTIONS (7)
  - Hyperhidrosis [Recovered/Resolved]
  - Influenza [Unknown]
  - Skin discolouration [Recovered/Resolved]
  - Product adhesion issue [Unknown]
  - Pyrexia [Unknown]
  - Memory impairment [Recovered/Resolved]
  - Feeling abnormal [Recovering/Resolving]
